FAERS Safety Report 23370234 (Version 2)
Quarter: 2024Q1

REPORT INFORMATION
  Report Type: Spontaneous
  Country: LV (occurrence: LV)
  Receive Date: 20240105
  Receipt Date: 20240118
  Transmission Date: 20240409
  Serious: Yes (Other)
  Sender: FDA-Public Use
  Company Number: LV-Gedeon Richter Plc.-2023_GR_012185

PATIENT
  Age: 58 Year
  Sex: Female

DRUGS (5)
  1. FLUCONAZOLE [Suspect]
     Active Substance: FLUCONAZOLE
     Indication: Oral candidiasis
     Dosage: UNK
     Dates: start: 2023, end: 20231002
  2. DEXAMETHASONE [Concomitant]
     Active Substance: DEXAMETHASONE
     Indication: Brain oedema
     Dosage: UNK
     Dates: start: 20230914, end: 20230914
  3. MORPHINE [Concomitant]
     Active Substance: MORPHINE
     Indication: Brain oedema
     Dosage: UNK
     Dates: start: 20230914, end: 20230914
  4. MANNITOL [Concomitant]
     Active Substance: MANNITOL
     Indication: Brain oedema
     Dosage: UNK
     Dates: start: 20230914, end: 20230914
  5. ACYCLOVIR [Concomitant]
     Active Substance: ACYCLOVIR
     Indication: Herpes zoster
     Dosage: UNK
     Route: 042
     Dates: start: 20230926

REACTIONS (1)
  - Drug resistance [Unknown]

NARRATIVE: CASE EVENT DATE: 20231002
